FAERS Safety Report 21058933 (Version 3)
Quarter: 2022Q4

REPORT INFORMATION
  Report Type: Spontaneous
  Country: US (occurrence: US)
  Receive Date: 20220708
  Receipt Date: 20221101
  Transmission Date: 20230113
  Serious: Yes (Other)
  Sender: FDA-Public Use
  Company Number: US-PARATEK PHARMACEUTICALS, INC.-2022PTK00209

PATIENT
  Sex: Male
  Weight: 124.26 kg

DRUGS (18)
  1. NUZYRA [Suspect]
     Active Substance: OMADACYCLINE
     Indication: Cellulitis
     Dosage: 450 MG, 2X/DAY
     Route: 048
     Dates: start: 20220625, end: 20220626
  2. NUZYRA [Suspect]
     Active Substance: OMADACYCLINE
     Indication: Infection
     Dosage: 300 MG, 1X/DAY
     Route: 048
     Dates: start: 20220627, end: 20220705
  3. ELIQUIS [Suspect]
     Active Substance: APIXABAN
  4. KEYTRUDA [Concomitant]
     Active Substance: PEMBROLIZUMAB
     Dosage: EVERY 3 WEEKS
  5. LOSARTAN [Concomitant]
     Active Substance: LOSARTAN
  6. VITAMIN D3 [Concomitant]
     Active Substance: CHOLECALCIFEROL
  7. POTASSIUM CHLORIDE [Concomitant]
     Active Substance: POTASSIUM CHLORIDE
  8. FUROSEMIDE [Concomitant]
     Active Substance: FUROSEMIDE
  9. NORVASC [Concomitant]
     Active Substance: AMLODIPINE BESYLATE
  10. AMIODARONE [Concomitant]
     Active Substance: AMIODARONE
  11. PANTOPRAZOLE [Concomitant]
     Active Substance: PANTOPRAZOLE
  12. LIPITOR [Concomitant]
     Active Substance: ATORVASTATIN CALCIUM
  13. TYLENOL [Concomitant]
     Active Substance: ACETAMINOPHEN
  14. UNSPECIFIED INGREDIENT [Concomitant]
     Active Substance: UNSPECIFIED INGREDIENT
  15. ARTHROTEC [Concomitant]
     Active Substance: DICLOFENAC SODIUM\MISOPROSTOL
  16. VITAMIN D2 [Concomitant]
     Active Substance: ERGOCALCIFEROL
  17. SYNTHROID [Concomitant]
     Active Substance: LEVOTHYROXINE SODIUM
  18. NORCO [Concomitant]
     Active Substance: ACETAMINOPHEN\HYDROCODONE BITARTRATE
     Dosage: 4 DOSAGE FORM, AS NEEDED

REACTIONS (31)
  - Drug hypersensitivity [Not Recovered/Not Resolved]
  - Body temperature decreased [Recovered/Resolved]
  - Blister [Not Recovered/Not Resolved]
  - Generalised oedema [Not Recovered/Not Resolved]
  - Skin erosion [Not Recovered/Not Resolved]
  - Blood blister [Not Recovered/Not Resolved]
  - Skin atrophy [Not Recovered/Not Resolved]
  - Gait disturbance [Not Recovered/Not Resolved]
  - Tongue disorder [Not Recovered/Not Resolved]
  - Pain of skin [Not Recovered/Not Resolved]
  - Pain [Not Recovered/Not Resolved]
  - Irritability [Not Recovered/Not Resolved]
  - Somnolence [Not Recovered/Not Resolved]
  - Visual impairment [Not Recovered/Not Resolved]
  - Pyrexia [Unknown]
  - Listless [Not Recovered/Not Resolved]
  - Asthenia [Not Recovered/Not Resolved]
  - Dyspnoea [Not Recovered/Not Resolved]
  - Decreased appetite [Recovered/Resolved]
  - Scab [Not Recovered/Not Resolved]
  - Tremor [Not Recovered/Not Resolved]
  - Feeling cold [Unknown]
  - Dry skin [Not Recovered/Not Resolved]
  - Tearfulness [Unknown]
  - Fluid retention [Not Recovered/Not Resolved]
  - Swelling [Not Recovered/Not Resolved]
  - Erythema [Not Recovered/Not Resolved]
  - Pruritus [Not Recovered/Not Resolved]
  - Fatigue [Not Recovered/Not Resolved]
  - Off label use [Recovered/Resolved]
  - Unevaluable event [Not Recovered/Not Resolved]

NARRATIVE: CASE EVENT DATE: 20220101
